FAERS Safety Report 13175286 (Version 1)
Quarter: 2017Q1

REPORT INFORMATION
  Report Type: Spontaneous
  Country: US (occurrence: US)
  Receive Date: 20170131
  Receipt Date: 20170131
  Transmission Date: 20170428
  Serious: Yes (Hospitalization)
  Sender: FDA-Public Use
  Company Number: None

PATIENT
  Age: 69 Year
  Sex: Male
  Weight: 100.9 kg

DRUGS (2)
  1. ALLOPURINOL. [Suspect]
     Active Substance: ALLOPURINOL
     Indication: GOUT
     Route: 048
     Dates: start: 20160922, end: 20161122
  2. ALLOPURINOL. [Suspect]
     Active Substance: ALLOPURINOL
     Indication: RENAL TRANSPLANT
     Route: 048
     Dates: start: 20160922, end: 20161122

REACTIONS (3)
  - Thrombocytopenia [None]
  - Anaemia [None]
  - Leukopenia [None]

NARRATIVE: CASE EVENT DATE: 20161114
